FAERS Safety Report 7723588 (Version 3)
Quarter: 2013Q2

REPORT INFORMATION
  Report Type: Spontaneous
  Country: US (occurrence: US)
  Receive Date: 20101220
  Receipt Date: 20130403
  Transmission Date: 20140414
  Serious: Yes (Life-Threatening, Hospitalization)
  Sender: FDA-Public Use
  Company Number: US-WATSON-2010-16139

PATIENT
  Age: 47 Year
  Sex: Male

DRUGS (1)
  1. TRAMADOL HYDROCHLORIDE (UNKNOWN) [Suspect]
     Indication: INTENTIONAL OVERDOSE
     Dosage: 3000 MG, UNKNOWN
     Route: 048

REACTIONS (5)
  - Electrocardiogram abnormal [Recovered/Resolved]
  - Hypoventilation [Recovered/Resolved]
  - Intentional overdose [Recovered/Resolved]
  - Mental status changes [Recovered/Resolved]
  - Troponin I increased [Recovered/Resolved]
